FAERS Safety Report 9759515 (Version 1)
Quarter: 2013Q4

REPORT INFORMATION
  Report Type: Spontaneous
  Country: SA (occurrence: SA)
  Receive Date: 20131216
  Receipt Date: 20131216
  Transmission Date: 20140711
  Serious: Yes (Other)
  Sender: FDA-Public Use
  Company Number: SA-MYLANLABS-2013S1027286

PATIENT
  Age: 55 Year
  Sex: Female

DRUGS (10)
  1. METHOTREXATE [Suspect]
     Indication: POLYARTHRITIS
     Dosage: 12.5 MG/WEEK
     Route: 065
     Dates: start: 201112
  2. AZITHROMAX [Suspect]
     Indication: MYCOBACTERIUM ABSCESSUS INFECTION
     Route: 065
     Dates: start: 201209, end: 201212
  3. FOLIC ACID [Concomitant]
     Indication: POLYARTHRITIS
     Dosage: 5 MG/WEEK
     Route: 065
     Dates: start: 201112
  4. PREDNISOLONE [Concomitant]
     Indication: POLYARTHRITIS
     Route: 065
     Dates: start: 201112
  5. ISONIAZID [Concomitant]
     Route: 065
     Dates: start: 201204
  6. PYRIDOXINE [Concomitant]
     Route: 065
     Dates: start: 201204
  7. ENBREL [Concomitant]
     Route: 058
     Dates: start: 201207, end: 201209
  8. CIPROFLOXACIN [Concomitant]
     Indication: MYCOBACTERIUM ABSCESSUS INFECTION
     Route: 065
     Dates: start: 201209
  9. DOXYCYCLINE [Concomitant]
     Indication: MYCOBACTERIUM ABSCESSUS INFECTION
     Route: 065
     Dates: start: 201209
  10. ETHAMBUTOL [Concomitant]
     Indication: MYCOBACTERIUM ABSCESSUS INFECTION
     Route: 065
     Dates: start: 201211

REACTIONS (5)
  - Arthritis [Recovering/Resolving]
  - Mycobacterium abscessus infection [Recovering/Resolving]
  - Lung infection [Recovering/Resolving]
  - Drug hypersensitivity [Unknown]
  - Abdominal discomfort [Unknown]
